FAERS Safety Report 13517573 (Version 1)
Quarter: 2017Q2

REPORT INFORMATION
  Report Type: Spontaneous
  Country: US (occurrence: US)
  Receive Date: 20170505
  Receipt Date: 20170505
  Transmission Date: 20170830
  Serious: No
  Sender: FDA-Public Use
  Company Number: None

PATIENT
  Age: 32 Year
  Sex: Male

DRUGS (1)
  1. SUBOXONE [Suspect]
     Active Substance: BUPRENORPHINE HYDROCHLORIDE\NALOXONE HYDROCHLORIDE
     Indication: DRUG USE DISORDER
     Dosage: DOSE 8/2MG TAB
     Route: 060
     Dates: start: 20170314, end: 20170425

REACTIONS (5)
  - Back pain [None]
  - Stomatitis [None]
  - Restless legs syndrome [None]
  - Sleep disorder [None]
  - Formication [None]

NARRATIVE: CASE EVENT DATE: 20070314
